FAERS Safety Report 8887454 (Version 1)
Quarter: 2012Q4

REPORT INFORMATION
  Report Type: Spontaneous
  Country: US (occurrence: None)
  Receive Date: 20121101
  Receipt Date: 20121101
  Transmission Date: 20130627
  Serious: Yes (Hospitalization)
  Sender: FDA-Public Use
  Company Number: None

PATIENT
  Age: 71 Year
  Sex: Male
  Weight: 58.06 kg

DRUGS (1)
  1. BUPROPION [Suspect]
     Route: 048
     Dates: end: 20121011

REACTIONS (2)
  - Stevens-Johnson syndrome [None]
  - Myocardial infarction [None]
